FAERS Safety Report 10179795 (Version 1)
Quarter: 2014Q2

REPORT INFORMATION
  Report Type: Spontaneous
  Country: US (occurrence: US)
  Receive Date: 20140519
  Receipt Date: 20140519
  Transmission Date: 20141212
  Serious: No
  Sender: FDA-Public Use
  Company Number: US-AMGEN INC.-USASP2013070761

PATIENT
  Age: 71 Year
  Sex: Female

DRUGS (7)
  1. PROLIA [Suspect]
     Indication: PRODUCT USED FOR UNKNOWN INDICATION
     Dosage: UNK
     Route: 065
  2. SYNTHROID [Concomitant]
  3. FISH OIL [Concomitant]
  4. GLUCOSAMINE [Concomitant]
  5. CALCIUM [Concomitant]
  6. VITAMIN D                          /00107901/ [Concomitant]
  7. VITAMIN C                          /00008001/ [Concomitant]

REACTIONS (4)
  - Urticaria [Recovered/Resolved]
  - Rash macular [Recovered/Resolved]
  - Pain of skin [Unknown]
  - Rash pruritic [Unknown]
